FAERS Safety Report 8422025-1 (Version None)
Quarter: 2012Q2

REPORT INFORMATION
  Report Type: 
  Country: None (occurrence: None)
  Receive Date: 20120608
  Receipt Date: 20120510
  Transmission Date: 20120825
  Serious: Yes (Other)
  Sender: FDA-Public Use
  Company Number: US-ROCHE-1021324

PATIENT
  Sex: Male

DRUGS (14)
  1. NIFEDIPINE [Concomitant]
  2. EFFEXOR XR [Concomitant]
  3. RANIBIZUMAB [Suspect]
     Indication: AGE-RELATED MACULAR DEGENERATION
     Route: 050
     Dates: start: 20091101
  4. NIASPAN [Concomitant]
  5. LIPITOR [Concomitant]
  6. ASPIRIN [Concomitant]
  7. DETROL [Concomitant]
  8. ALLOPURINOL [Concomitant]
  9. METOPROLOL TARTRATE [Concomitant]
  10. OMEPRAZOLE [Concomitant]
  11. AREDS SUPPLEMENT NOS [Concomitant]
  12. RANIBIZUMAB [Suspect]
     Dates: start: 20110201
  13. LORAZEPAM [Concomitant]
  14. TERAZOSIN HCL [Concomitant]

REACTIONS (4)
  - SUBRETINAL FIBROSIS [None]
  - AGE-RELATED MACULAR DEGENERATION [None]
  - VISION BLURRED [None]
  - DETACHMENT OF RETINAL PIGMENT EPITHELIUM [None]
